FAERS Safety Report 7150401-6 (Version None)
Quarter: 2010Q4

REPORT INFORMATION
  Report Type: 
  Country: None (occurrence: None)
  Receive Date: 20101210
  Receipt Date: 20101129
  Transmission Date: 20110411
  Serious: Yes (Hospitalization)
  Sender: FDA-Public Use
  Company Number: PHHY2010TR81213

PATIENT
  Sex: Male
  Weight: 64 kg

DRUGS (3)
  1. CERTICAN [Suspect]
     Indication: TRANSPLANT
     Dosage: 0.75 MG, BID
     Route: 048
     Dates: start: 20091020, end: 20100928
  2. DELTACORTRIL [Concomitant]
     Dosage: 5 MG
     Dates: start: 20091015, end: 20100928
  3. MYCOPHENOLATE MOFETIL [Concomitant]
     Dosage: 1000 MG, BID
     Dates: start: 20091015, end: 20100928

REACTIONS (4)
  - BLOOD CREATININE INCREASED [None]
  - BLOOD UREA INCREASED [None]
  - GRAFT LOSS [None]
  - TRANSPLANT REJECTION [None]
